FAERS Safety Report 6874300-X (Version None)
Quarter: 2010Q3

REPORT INFORMATION
  Report Type: 
  Country: None (occurrence: None)
  Receive Date: 20100723
  Receipt Date: 20090617
  Transmission Date: 20110219
  Serious: No
  Sender: FDA-Public Use
  Company Number: US-PFIZER INC-2009205410

PATIENT
  Sex: Female
  Weight: 81.646 kg

DRUGS (4)
  1. CHANTIX [Suspect]
     Indication: SMOKING CESSATION THERAPY
     Dosage: 0.5 MG, 1X/DAY
     Dates: start: 20090423
  2. PAXIL [Concomitant]
  3. TARKA [Concomitant]
     Indication: CARDIAC DISORDER
     Dosage: UNK
  4. XANAX [Concomitant]
     Indication: PANIC ATTACK

REACTIONS (3)
  - IRRITABILITY [None]
  - PANIC ATTACK [None]
  - TREMOR [None]
